FAERS Safety Report 7106989-4 (Version None)
Quarter: 2010Q4

REPORT INFORMATION
  Report Type: 
  Country: None (occurrence: None)
  Receive Date: 20101116
  Receipt Date: 20101109
  Transmission Date: 20110411
  Serious: No
  Sender: FDA-Public Use
  Company Number: US-ABBOTT-10P-163-0684117-00

PATIENT
  Sex: Male
  Weight: 86.26 kg

DRUGS (4)
  1. SIMCOR [Suspect]
     Indication: HYPERLIPIDAEMIA
     Dates: start: 20101019
  2. VYVANSE [Concomitant]
     Indication: PRODUCT USED FOR UNKNOWN INDICATION
  3. TRILIPIX [Concomitant]
     Indication: PRODUCT USED FOR UNKNOWN INDICATION
  4. LOVAZA [Concomitant]
     Indication: PRODUCT USED FOR UNKNOWN INDICATION

REACTIONS (2)
  - FEELING HOT [None]
  - FLUSHING [None]
